FAERS Safety Report 8831626 (Version 1)
Quarter: 2012Q4

REPORT INFORMATION
  Report Type: 
  Country: US (occurrence: US)
  Receive Date: 20121009
  Receipt Date: 20121009
  Transmission Date: 20130627
  Serious: Yes (Other)
  Sender: FDA-Public Use
  Company Number: US-ELI_LILLY_AND_COMPANY-US201209008344

PATIENT
  Age: 65 Year
  Sex: Male

DRUGS (6)
  1. HUMULIN NPH [Suspect]
     Indication: TYPE 2 DIABETES MELLITUS
     Dosage: 12 u, each morning
     Dates: start: 2009
  2. HUMULIN NPH [Suspect]
     Dosage: 24 u, each evening
     Dates: start: 2009
  3. HUMALOG LISPRO [Suspect]
     Indication: TYPE 2 DIABETES MELLITUS
     Dosage: 8 u, each morning
     Dates: start: 2009
  4. HUMALOG LISPRO [Suspect]
     Dosage: 8 u, qd
     Dates: start: 2009
  5. HUMALOG LISPRO [Suspect]
     Dosage: 18 u, each evening
     Dates: start: 2009
  6. HUMALOG LISPRO [Suspect]
     Dosage: 4 u, prn
     Dates: start: 2009

REACTIONS (2)
  - Vascular graft [Unknown]
  - Blood glucose increased [Unknown]
